FAERS Safety Report 14601081 (Version 2)
Quarter: 2018Q3

REPORT INFORMATION
  Report Type: Spontaneous
  Country: US (occurrence: US)
  Receive Date: 20180305
  Receipt Date: 20180809
  Transmission Date: 20181010
  Serious: Yes (Hospitalization)
  Sender: FDA-Public Use
  Company Number: US-ACTELION-A-NJ2018-168474

PATIENT
  Age: 71 Year
  Sex: Male
  Weight: 51.25 kg

DRUGS (3)
  1. ADCIRCA [Concomitant]
     Active Substance: TADALAFIL
  2. TRACLEER [Suspect]
     Active Substance: BOSENTAN
     Indication: PULMONARY ARTERIAL HYPERTENSION
     Dosage: 125 MG, BID
     Route: 048
     Dates: start: 20090118
  3. COUMADIN [Concomitant]
     Active Substance: WARFARIN SODIUM

REACTIONS (4)
  - Chest pain [Unknown]
  - Cardiac disorder [Unknown]
  - Knee arthroplasty [Unknown]
  - Atrial fibrillation [Unknown]

NARRATIVE: CASE EVENT DATE: 201802
